FAERS Safety Report 17636976 (Version 1)
Quarter: 2020Q2

REPORT INFORMATION
  Report Type: Spontaneous
  Country: AU (occurrence: AU)
  Receive Date: 20200405
  Receipt Date: 20200405
  Transmission Date: 20200713
  Serious: Yes (Other)
  Sender: FDA-Public Use
  Company Number: None

PATIENT
  Age: 38 Year
  Sex: Male
  Weight: 94 kg

DRUGS (9)
  1. ORTHOPLEX BIO ENHANCED METHYL-B [Concomitant]
  2. MEDLAB-MULTIBIOTIC [Concomitant]
  3. ORIENTAL BOTANICALS ZINC EXCEL [Concomitant]
  4. BIOCEUTICAL ADRENOPLEX [Concomitant]
  5. DEXAMFETAMINE SULFATE [Suspect]
     Active Substance: DEXTROAMPHETAMINE SULFATE
     Indication: ATTENTION DEFICIT HYPERACTIVITY DISORDER
     Dosage: ?          QUANTITY:3 TABLET(S);?
     Route: 048
  6. ANTIOX EXCEL [Concomitant]
  7. BIOCEUTICAL THERACTIVE TRIPLE [Concomitant]
  8. NATURAL ASTAXANTHIN [Concomitant]
  9. GREEN NUTRITIONALS [Concomitant]

REACTIONS (7)
  - Sedation [None]
  - Agitation [None]
  - Visual impairment [None]
  - Suicidal ideation [None]
  - Fatigue [None]
  - Depression [None]
  - Erectile dysfunction [None]

NARRATIVE: CASE EVENT DATE: 20200323
